FAERS Safety Report 4981659-7 (Version None)
Quarter: 2006Q2

REPORT INFORMATION
  Report Type: 
  Country: None (occurrence: None)
  Receive Date: 20060425
  Receipt Date: 20060413
  Transmission Date: 20061013
  Serious: Yes (Other)
  Sender: FDA-Public Use
  Company Number: PHBS2006IT05472

PATIENT
  Age: 64 Year
  Sex: Male

DRUGS (4)
  1. VOLTAREN [Suspect]
     Indication: BACK PAIN
     Dosage: 75 MG/DAY
     Dates: start: 20060309, end: 20060309
  2. ADALAT [Concomitant]
  3. SALMETEROL [Concomitant]
  4. VENTOLIN [Concomitant]
     Dosage: 100 UG, PRN

REACTIONS (5)
  - BRONCHOSPASM [None]
  - DYSPNOEA [None]
  - ERYTHEMA [None]
  - PALPITATIONS [None]
  - PRURITUS [None]
